FAERS Safety Report 14824577 (Version 4)
Quarter: 2018Q3

REPORT INFORMATION
  Report Type: Spontaneous
  Country: US (occurrence: US)
  Receive Date: 20180429
  Receipt Date: 20180921
  Transmission Date: 20181010
  Serious: Yes (Other)
  Sender: FDA-Public Use
  Company Number: US-009507513-1804USA008790

PATIENT
  Sex: Female
  Weight: 60.32 kg

DRUGS (1)
  1. NEXPLANON [Suspect]
     Active Substance: ETONOGESTREL
     Indication: CONTRACEPTION
     Dosage: 1 IMPLANT, EVERY THREE YEARS
     Route: 059
     Dates: start: 201611, end: 20180724

REACTIONS (6)
  - Device dislocation [Recovered/Resolved]
  - Amenorrhoea [Recovered/Resolved]
  - Menstruation irregular [Unknown]
  - Complication associated with device [Recovered/Resolved]
  - Scar [Unknown]
  - Muscle spasms [Unknown]
